FAERS Safety Report 9708259 (Version 1)
Quarter: 2013Q4

REPORT INFORMATION
  Report Type: Spontaneous
  Country: US (occurrence: US)
  Receive Date: 20131125
  Receipt Date: 20131125
  Transmission Date: 20140711
  Serious: Yes (Other)
  Sender: FDA-Public Use
  Company Number: US-PFIZER INC-2013331386

PATIENT
  Sex: Female

DRUGS (2)
  1. DILANTIN [Suspect]
     Indication: GRAND MAL CONVULSION
     Dosage: 300 MG, DAILY
  2. DILANTIN [Suspect]
     Dosage: UP TO 3000 MG DAY

REACTIONS (4)
  - Epilepsy [Unknown]
  - Drug ineffective [Unknown]
  - Renal disorder [Unknown]
  - Drug level decreased [Unknown]
